FAERS Safety Report 5767921-9 (Version None)
Quarter: 2008Q2

REPORT INFORMATION
  Report Type: 
  Country: None (occurrence: None)
  Receive Date: 20080606
  Receipt Date: 20080604
  Transmission Date: 20081010
  Serious: Yes (Other)
  Sender: FDA-Public Use
  Company Number: THQ2008A00651

PATIENT
  Age: 67 Year
  Sex: Female

DRUGS (7)
  1. ACTOS [Suspect]
     Indication: DIABETES MELLITUS
     Dosage: 15 MG (15 MG, 1 IN 1 D) PER ORAL
     Route: 048
     Dates: start: 20070901, end: 20080301
  2. DIAMICRON MR (GLICLAZIDE) [Concomitant]
  3. GLUCOPHAGE [Concomitant]
  4. CRESTOR [Concomitant]
  5. EZETROL (EZETIMIBE) [Concomitant]
  6. SALOSPIR (ACETYLSALICYLIC ACID) [Concomitant]
  7. LOFTYL (BUFLOMEDIL HYDROCHLORIDE) [Concomitant]

REACTIONS (4)
  - DYSPNOEA EXERTIONAL [None]
  - OEDEMA [None]
  - PULMONARY HYPERTENSION [None]
  - RENAL IMPAIRMENT [None]
